FAERS Safety Report 5639086-5 (Version None)
Quarter: 2008Q1

REPORT INFORMATION
  Report Type: 
  Country: None (occurrence: None)
  Receive Date: 20080226
  Receipt Date: 20080221
  Transmission Date: 20080703
  Serious: Yes (Death, Hospitalization)
  Sender: FDA-Public Use
  Company Number: PHEH2008US02080

PATIENT
  Age: 15 Year
  Sex: Male
  Weight: 75.129 kg

DRUGS (1)
  1. EXJADE [Suspect]
     Indication: IRON OVERLOAD
     Dosage: 1500 UNK, QD
     Route: 048
     Dates: start: 20060217, end: 20080206

REACTIONS (2)
  - MALAISE [None]
  - SEPSIS [None]
